FAERS Safety Report 9515370 (Version 1)
Quarter: 2013Q3

REPORT INFORMATION
  Report Type: Spontaneous
  Country: GB (occurrence: GB)
  Receive Date: 20130911
  Receipt Date: 20130911
  Transmission Date: 20140515
  Serious: Yes (Other)
  Sender: FDA-Public Use
  Company Number: PHFR2013GB005017

PATIENT
  Sex: Female

DRUGS (1)
  1. GILENYA [Suspect]
     Indication: MULTIPLE SCLEROSIS
     Dosage: UNK
     Dates: start: 20121218

REACTIONS (25)
  - Syncope [Unknown]
  - Nausea [Not Recovered/Not Resolved]
  - Feeling abnormal [Recovering/Resolving]
  - Vomiting [Recovering/Resolving]
  - Ageusia [Unknown]
  - Movement disorder [Unknown]
  - Insomnia [Recovering/Resolving]
  - Balance disorder [Unknown]
  - Gait disturbance [Unknown]
  - Fall [Unknown]
  - Muscular weakness [Unknown]
  - Weight increased [Recovering/Resolving]
  - Increased appetite [Recovering/Resolving]
  - Cognitive disorder [Unknown]
  - Memory impairment [Unknown]
  - Eye disorder [Unknown]
  - Eye movement disorder [Unknown]
  - Vitreous floaters [Unknown]
  - Diplopia [Unknown]
  - Dizziness [Recovering/Resolving]
  - Weight decreased [Unknown]
  - Alopecia [Recovering/Resolving]
  - Pruritus [Recovering/Resolving]
  - Headache [Recovering/Resolving]
  - Multiple sclerosis relapse [Unknown]
